FAERS Safety Report 8987717 (Version 2)
Quarter: 2013Q1

REPORT INFORMATION
  Report Type: Spontaneous
  Country: US (occurrence: US)
  Receive Date: 20121227
  Receipt Date: 20130111
  Transmission Date: 20140127
  Serious: No
  Sender: FDA-Public Use
  Company Number: US-PFIZER INC-2012327090

PATIENT
  Sex: Female

DRUGS (1)
  1. TOVIAZ [Suspect]
     Dosage: UNK

REACTIONS (5)
  - Nail disorder [Unknown]
  - Onychoclasis [Unknown]
  - Hair texture abnormal [Unknown]
  - Dry mouth [Unknown]
  - Constipation [Unknown]
